FAERS Safety Report 9137663 (Version 1)
Quarter: 2013Q1

REPORT INFORMATION
  Report Type: Spontaneous
  Country: US (occurrence: US)
  Receive Date: 20130304
  Receipt Date: 20130304
  Transmission Date: 20140127
  Serious: No
  Sender: FDA-Public Use
  Company Number: US-009507513-1303USA001128

PATIENT
  Age: 34 Year
  Sex: Female

DRUGS (3)
  1. AFRIN [Suspect]
     Indication: NASOPHARYNGITIS
     Dosage: UNK, UNKNOWN
     Route: 045
  2. AFRIN [Suspect]
     Indication: DYSPNOEA
  3. AFRIN [Suspect]
     Indication: NASAL CONGESTION

REACTIONS (2)
  - Nasal dryness [Unknown]
  - Nasal discomfort [Unknown]
